FAERS Safety Report 21181274 (Version 2)
Quarter: 2022Q3

REPORT INFORMATION
  Report Type: Spontaneous
  Country: US (occurrence: US)
  Receive Date: 20220806
  Receipt Date: 20220923
  Transmission Date: 20221026
  Serious: No
  Sender: FDA-Public Use
  Company Number: US-SA-SAC20220729000106

PATIENT
  Age: 50 Year
  Sex: Female

DRUGS (1)
  1. DUPIXENT [Suspect]
     Active Substance: DUPILUMAB
     Indication: Asthma
     Dosage: 200 MG, QOW
     Route: 058
     Dates: start: 20211130

REACTIONS (2)
  - Asthma [Not Recovered/Not Resolved]
  - Quality of life decreased [Not Recovered/Not Resolved]
